FAERS Safety Report 8570892 (Version 3)
Quarter: 2012Q4

REPORT INFORMATION
  Report Type: 
  Country: US (occurrence: US)
  Receive Date: 20120521
  Receipt Date: 20121001
  Transmission Date: 20130627
  Serious: Yes (Hospitalization)
  Sender: FDA-Public Use
  Company Number: US-BAYER-2012-049214

PATIENT
  Age: 29 Year
  Sex: Female
  Weight: 113.38 kg

DRUGS (3)
  1. OCELLA [Suspect]
     Indication: CONTRACEPTION
     Dosage: UNK
     Route: 048
     Dates: start: 200908, end: 201103
  2. OCELLA [Suspect]
     Indication: PREMENSTRUAL SYNDROME
     Dosage: UNK
     Route: 048
  3. METOPROLOL [Concomitant]
     Indication: MIGRAINE
     Dosage: UNK
     Dates: start: 200906

REACTIONS (6)
  - Deep vein thrombosis [Not Recovered/Not Resolved]
  - Injury [Not Recovered/Not Resolved]
  - Pain [None]
  - General physical health deterioration [Not Recovered/Not Resolved]
  - Anxiety [None]
  - Emotional distress [None]
